FAERS Safety Report 7294142-3 (Version None)
Quarter: 2011Q1

REPORT INFORMATION
  Report Type: 
  Country: None (occurrence: None)
  Receive Date: 20110215
  Receipt Date: 20110204
  Transmission Date: 20110831
  Serious: Yes (Hospitalization)
  Sender: FDA-Public Use
  Company Number: US-JNJCH-2010029019

PATIENT
  Age: 40 Year
  Sex: Female
  Weight: 117 kg

DRUGS (9)
  1. REGLAN [Concomitant]
     Indication: ABDOMINAL DISCOMFORT
     Dosage: TEXT:TWICE A DAY
     Route: 065
  2. PROAIR HFA [Concomitant]
     Indication: ASTHMA
     Dosage: TEXT:TWO PUFFS 2-4 TIMES A DAY
     Route: 055
  3. LISINOPRIL [Concomitant]
     Indication: HYPERTENSION
     Dosage: TEXT:ONCE A DAY
     Route: 065
  4. ZOLOFT [Concomitant]
     Indication: DEPRESSION
     Dosage: TEXT:ONE 100 MG TABLET DAILY
     Route: 065
  5. HUMULIN 70/30 [Concomitant]
     Indication: DIABETES MELLITUS
     Dosage: TEXT:TWICE A DAY
     Route: 065
  6. MULTI-SYMPTOM ROLAIDS PLUS ANTI-GAS SOFTCHEWS FRUIT [Suspect]
     Indication: FLATULENCE
  7. MULTI-SYMPTOM ROLAIDS PLUS ANTI-GAS SOFTCHEWS FRUIT [Suspect]
     Indication: DYSPEPSIA
     Dosage: TEXT:TWO AS NEEDED
     Route: 048
  8. INSULIN [Concomitant]
     Indication: DIABETES MELLITUS
     Dosage: TEXT:REGULAR INSULIN SLIDING SCALE AS NEEDED
     Route: 065
  9. Q-VAR INHALER [Concomitant]
     Indication: ASTHMA
     Dosage: TEXT:TWO PUFFS DAILY
     Route: 055

REACTIONS (11)
  - INSOMNIA [None]
  - HEADACHE [None]
  - HYPERHIDROSIS [None]
  - VOMITING [None]
  - EXPIRED DRUG ADMINISTERED [None]
  - BLOOD PRESSURE INCREASED [None]
  - CHEST PAIN [None]
  - DEHYDRATION [None]
  - GASTROINTESTINAL INFECTION [None]
  - PRODUCT QUALITY ISSUE [None]
  - ABDOMINAL DISTENSION [None]
